FAERS Safety Report 21371527 (Version 3)
Quarter: 2022Q4

REPORT INFORMATION
  Report Type: Spontaneous
  Country: TW (occurrence: TW)
  Receive Date: 20220923
  Receipt Date: 20221223
  Transmission Date: 20230112
  Serious: Yes (Death, Other)
  Sender: FDA-Public Use
  Company Number: TW-BRISTOL-MYERS SQUIBB COMPANY-2022-111046

PATIENT
  Age: 89 Year
  Sex: Male
  Weight: 62 kg

DRUGS (2)
  1. NIVOLUMAB [Suspect]
     Active Substance: NIVOLUMAB
     Indication: Hepatocellular carcinoma
     Dosage: SUBSEQUENT DOSE DATE 08-JUL-2021, 29-JUL-2021
     Route: 042
     Dates: start: 20210617
  2. IPILIMUMAB [Suspect]
     Active Substance: IPILIMUMAB
     Indication: Hepatocellular carcinoma
     Dosage: SUBSEQUENT DOSE DATE 08-JUL-2021, 29-JUL-2021
     Route: 042

REACTIONS (5)
  - Depressed level of consciousness [Fatal]
  - Renal impairment [Fatal]
  - Oedema peripheral [Unknown]
  - Hepatic function abnormal [Unknown]
  - Off label use [Unknown]

NARRATIVE: CASE EVENT DATE: 20210819
